FAERS Safety Report 9227083 (Version 1)
Quarter: 2013Q2

REPORT INFORMATION
  Report Type: Spontaneous
  Country: HR (occurrence: HR)
  Receive Date: 20130412
  Receipt Date: 20130412
  Transmission Date: 20140414
  Serious: Yes (Death, Other)
  Sender: FDA-Public Use
  Company Number: HR-ELI_LILLY_AND_COMPANY-HR201304001701

PATIENT
  Sex: Female

DRUGS (2)
  1. ZYPREXA [Suspect]
     Indication: SCHIZOPHRENIA
     Dosage: 2.5 MG, EACH EVENING
     Route: 064
     Dates: start: 2000
  2. NORMABEL [Suspect]
     Dosage: 2 MG, PRN
     Route: 064

REACTIONS (3)
  - Foetal death [Fatal]
  - Premature separation of placenta [Fatal]
  - Foetal exposure during pregnancy [Not Recovered/Not Resolved]
